FAERS Safety Report 14925696 (Version 1)
Quarter: 2018Q2

REPORT INFORMATION
  Report Type: Spontaneous
  Country: US (occurrence: US)
  Receive Date: 20180522
  Receipt Date: 20180522
  Transmission Date: 20180711
  Serious: No
  Sender: FDA-Public Use
  Company Number: US-AMAG PHARMACEUTICALS, INC.-AMAG201801383

PATIENT

DRUGS (3)
  1. INTRAROSA [Suspect]
     Active Substance: PRASTERONE
     Indication: ATROPHIC VULVOVAGINITIS
     Dosage: 6.5 MG, QD
     Route: 067
     Dates: start: 20180307, end: 20180326
  2. ESTROGEN [Concomitant]
     Active Substance: ESTROGENS
     Indication: ATROPHIC VULVOVAGINITIS
     Dosage: UNK
     Route: 065
     Dates: start: 20180306
  3. BACLOFEN. [Concomitant]
     Active Substance: BACLOFEN
     Indication: DYSPAREUNIA
     Dosage: UNK, PRN
     Route: 065
     Dates: start: 20180306

REACTIONS (3)
  - Application site pain [Recovered/Resolved]
  - Haematuria [Recovered/Resolved]
  - Off label use [Unknown]

NARRATIVE: CASE EVENT DATE: 20180320
